FAERS Safety Report 6604540-6 (Version None)
Quarter: 2010Q1

REPORT INFORMATION
  Report Type: 
  Country: None (occurrence: None)
  Receive Date: 20100226
  Receipt Date: 20100108
  Transmission Date: 20100710
  Serious: No
  Sender: FDA-Public Use
  Company Number: A0817463A

PATIENT
  Age: 72 Year
  Sex: Female

DRUGS (3)
  1. LAMICTAL CD [Suspect]
     Indication: BIPOLAR DISORDER
     Dosage: 150MG PER DAY
     Route: 048
     Dates: start: 20060101
  2. FLONASE [Suspect]
     Indication: DRUG USE FOR UNKNOWN INDICATION
     Route: 045
  3. WELLBUTRIN SR [Concomitant]
     Route: 048

REACTIONS (3)
  - COUGH [None]
  - PRODUCT QUALITY ISSUE [None]
  - WHEEZING [None]
